FAERS Safety Report 8240663-6 (Version None)
Quarter: 2012Q1

REPORT INFORMATION
  Report Type: 
  Country: None (occurrence: None)
  Receive Date: 20120328
  Receipt Date: 20120320
  Transmission Date: 20120608
  Serious: Yes (Other)
  Sender: FDA-Public Use
  Company Number: US-PFIZER INC-2012038863

PATIENT
  Sex: Female

DRUGS (2)
  1. PHOSPHOLINE IODIDE [Suspect]
     Indication: INTRAOCULAR PRESSURE INCREASED
     Dosage: LEFT EYE 2X/DAY
     Route: 047
     Dates: start: 20090325
  2. TRAVATAN [Concomitant]
     Indication: INTRAOCULAR PRESSURE INCREASED
     Dosage: AT BEDTIME
     Dates: start: 20060105

REACTIONS (4)
  - HEARING IMPAIRED [None]
  - VISUAL ACUITY REDUCED [None]
  - VISUAL IMPAIRMENT [None]
  - READING DISORDER [None]
